FAERS Safety Report 19468968 (Version 1)
Quarter: 2021Q2

REPORT INFORMATION
  Report Type: Spontaneous
  Country: US (occurrence: US)
  Receive Date: 20210628
  Receipt Date: 20210628
  Transmission Date: 20210717
  Serious: Yes (Hospitalization, Other)
  Sender: FDA-Public Use
  Company Number: US-BAYER-2021-164056

PATIENT
  Age: 42 Year
  Sex: Female

DRUGS (1)
  1. ACETYLSALICYLIC ACID [Suspect]
     Active Substance: ASPIRIN
     Dosage: 20 DF, ONCE

REACTIONS (4)
  - Suicidal ideation [None]
  - Metabolic acidosis [None]
  - Respiratory alkalosis [None]
  - Hyperchloraemia [None]
